FAERS Safety Report 8861997 (Version 4)
Quarter: 2012Q4

REPORT INFORMATION
  Report Type: 
  Country: US (occurrence: US)
  Receive Date: 20121025
  Receipt Date: 20121220
  Transmission Date: 20130627
  Serious: No
  Sender: FDA-Public Use
  Company Number: US-PFIZER INC-2012265757

PATIENT
  Age: 43 Year
  Sex: Female

DRUGS (2)
  1. LYRICA [Suspect]
     Indication: FIBROMYALGIA
     Dosage: 200 mg, 2x/day
     Dates: start: 20121022, end: 20121022
  2. ZOLOFT [Suspect]
     Dosage: 50 mg, 1x/day

REACTIONS (2)
  - Pain [Unknown]
  - Anxiety [Unknown]
